FAERS Safety Report 9813308 (Version 4)
Quarter: 2014Q1

REPORT INFORMATION
  Report Type: Spontaneous
  Country: IT (occurrence: None)
  Receive Date: 20140109
  Receipt Date: 20140306
  Transmission Date: 20141002
  Serious: Yes (Hospitalization)
  Sender: FDA-Public Use
  Company Number: AUR-APL-2014-00178

PATIENT
  Age: 90 Year
  Sex: Female

DRUGS (5)
  1. OLANZAPINE [Suspect]
     Indication: PRODUCT USED FOR UNKNOWN INDICATION
     Dosage: 2.5 MG (2.5 MG, 1 IN 1 D), ORAL
     Route: 048
     Dates: start: 20131204, end: 20131227
  2. NORVASC (AMLODIPINE BESILATE) [Concomitant]
  3. LASIX (FUROSEMIDE) [Concomitant]
  4. KANRENOL (POTASSIUM CANRENOATE) [Concomitant]
  5. ACETYLSALICYLIC ACID (ACETYLSALICYLIC ACID) [Concomitant]

REACTIONS (3)
  - Grand mal convulsion [None]
  - Loss of consciousness [None]
  - Vomiting [None]
